FAERS Safety Report 4750466-2 (Version None)
Quarter: 2005Q3

REPORT INFORMATION
  Report Type: 
  Country: None (occurrence: None)
  Receive Date: 20050823
  Receipt Date: 20050822
  Transmission Date: 20060218
  Serious: Yes (Hospitalization)
  Sender: FDA-Public Use
  Company Number: S05-USA-03846-01

PATIENT
  Age: 52 Year
  Sex: Female

DRUGS (4)
  1. WELLBUTRIN [Suspect]
     Indication: DRUG USE FOR UNKNOWN INDICATION
     Route: 048
     Dates: end: 20041001
  2. LEXAPRO [Suspect]
     Indication: DEPRESSION
     Dosage: 10MG PER DAY
     Route: 048
     Dates: start: 20040101, end: 20041101
  3. RISPERDAL [Suspect]
     Dosage: 3MG PER DAY
     Route: 048
     Dates: start: 20041101, end: 20050727
  4. MULTI-VITAMIN [Concomitant]
     Route: 048

REACTIONS (7)
  - ALOPECIA [None]
  - DEPRESSION [None]
  - FATIGUE [None]
  - MENTAL DISORDER [None]
  - PARANOIA [None]
  - PSYCHOTIC DISORDER [None]
  - SOMNOLENCE [None]
